FAERS Safety Report 9723596 (Version 2)
Quarter: 2013Q4

REPORT INFORMATION
  Report Type: Spontaneous
  Country: FR (occurrence: FR)
  Receive Date: 20131202
  Receipt Date: 20131202
  Transmission Date: 20140711
  Serious: Yes (Life-Threatening, Hospitalization)
  Sender: FDA-Public Use
  Company Number: FR-SA-BMS17400490

PATIENT
  Age: 71 Year
  Sex: Male
  Weight: 64 kg

DRUGS (2)
  1. APROVEL [Suspect]
     Indication: HYPERTENSION
     Dosage: THERAPY:4-5 YRS
     Route: 048
     Dates: start: 200802, end: 20130124
  2. FLECAINE [Concomitant]
     Indication: ATRIAL FIBRILLATION

REACTIONS (7)
  - Weight decreased [Recovering/Resolving]
  - Type 1 diabetes mellitus [Unknown]
  - Hypercholesterolaemia [Unknown]
  - Autoimmune hepatitis [Recovering/Resolving]
  - Hepatitis cholestatic [Recovering/Resolving]
  - Sinus tachycardia [Recovered/Resolved]
  - Orthostatic hypotension [Recovered/Resolved]
